FAERS Safety Report 5500754-7 (Version None)
Quarter: 2007Q4

REPORT INFORMATION
  Report Type: 
  Country: None (occurrence: None)
  Receive Date: 20071023
  Receipt Date: 20070201
  Transmission Date: 20080405
  Serious: Yes (Other)
  Sender: FDA-Public Use
  Company Number: 34044

PATIENT
  Age: 54 Year
  Sex: Male
  Weight: 107 kg

DRUGS (3)
  1. CYTARABINE [Suspect]
     Indication: MANTLE CELL LYMPHOMA
     Dosage: 6.6 G EVERY 12 HRS X 4 DOSES
     Dates: start: 20061114, end: 20070201
  2. CYTARABINE [Suspect]
     Indication: MANTLE CELL LYMPHOMA
     Dosage: 6.6 EVERY 12 HRS X 4 DOSES
     Dates: start: 20061114, end: 20070201
  3. METHOTREXATE [Concomitant]

REACTIONS (1)
  - CHILLS [None]
